FAERS Safety Report 18762576 (Version 1)
Quarter: 2021Q1

REPORT INFORMATION
  Report Type: Spontaneous
  Country: US (occurrence: US)
  Receive Date: 20210119
  Receipt Date: 20210119
  Transmission Date: 20210419
  Serious: No
  Sender: FDA-Public Use
  Company Number: None

PATIENT
  Age: 72 Year
  Sex: Male
  Weight: 110 kg

DRUGS (1)
  1. GEMCITABINE (GEMCITABINE HCL 1MG/VIL INJ) [Suspect]
     Active Substance: GEMCITABINE HYDROCHLORIDE
     Indication: PANCREATIC CARCINOMA
     Dates: start: 20201215, end: 20201215

REACTIONS (4)
  - Lethargy [None]
  - Mental status changes [None]
  - Acute kidney injury [None]
  - Posterior reversible encephalopathy syndrome [None]

NARRATIVE: CASE EVENT DATE: 20201215
